FAERS Safety Report 12703201 (Version 1)
Quarter: 2016Q3

REPORT INFORMATION
  Report Type: Spontaneous
  Country: US (occurrence: US)
  Receive Date: 20160831
  Receipt Date: 20160831
  Transmission Date: 20161109
  Serious: No
  Sender: FDA-Public Use
  Company Number: GXBR2016US002233

PATIENT
  Age: 21 Year
  Sex: Female
  Weight: 58.96 kg

DRUGS (1)
  1. DICLOXACILLIN CAPSULES, USP [Suspect]
     Active Substance: DICLOXACILLIN
     Indication: MASTITIS
     Dosage: 250 MG, QID
     Route: 048
     Dates: start: 20151210, end: 20151216

REACTIONS (1)
  - Exposure during breast feeding [Recovered/Resolved]

NARRATIVE: CASE EVENT DATE: 20151210
